FAERS Safety Report 21601829 (Version 2)
Quarter: 2022Q4

REPORT INFORMATION
  Report Type: Other
  Country: CA (occurrence: None)
  Receive Date: 20221116
  Receipt Date: 20221118
  Transmission Date: 20230113
  Serious: No
  Sender: FDA-Public Use
  Company Number: CA-ROCHE-3219631

PATIENT
  Sex: Female

DRUGS (5)
  1. OCREVUS [Suspect]
     Active Substance: OCRELIZUMAB
     Indication: Relapsing-remitting multiple sclerosis
     Dosage: 300 MG AT DAY 0 AND 14, THEN 600 MG EVERY 6 MONTH
     Route: 042
     Dates: start: 20211104
  2. GABAPENTIN [Concomitant]
     Active Substance: GABAPENTIN
  3. MYRBETRIQ [Concomitant]
     Active Substance: MIRABEGRON
     Dosage: DAILY
  4. SOLIFENACIN [Concomitant]
     Active Substance: SOLIFENACIN
     Dosage: DAILY
  5. RABEPRAZOLE [Concomitant]
     Active Substance: RABEPRAZOLE
     Dosage: DAILY

REACTIONS (1)
  - COVID-19 [Recovered/Resolved]
